FAERS Safety Report 5266213-4 (Version None)
Quarter: 2007Q1

REPORT INFORMATION
  Report Type: 
  Country: None (occurrence: None)
  Receive Date: 20070315
  Receipt Date: 20070314
  Transmission Date: 20070707
  Serious: Yes (Other)
  Sender: FDA-Public Use
  Company Number: US-GLAXOSMITHKLINE-A0643106A

PATIENT
  Age: 63 Year
  Sex: Female
  Weight: 64.9 kg

DRUGS (13)
  1. FLOLAN [Suspect]
     Dosage: 35NGKM UNKNOWN
     Route: 042
     Dates: start: 20000901
  2. MULTI-VITAMIN [Concomitant]
     Dosage: 1TAB PER DAY
     Route: 048
  3. TUMS [Concomitant]
     Dosage: 2TAB AS REQUIRED
     Route: 048
  4. COUMADIN [Concomitant]
     Dosage: 5MG PER DAY
     Route: 048
  5. POTASSIUM CHLORIDE [Concomitant]
     Dosage: 90MEQ PER DAY
     Route: 048
  6. LASIX [Concomitant]
     Dosage: 80MG PER DAY
     Route: 048
  7. NEURONTIN [Concomitant]
     Dosage: 600MG THREE TIMES PER DAY
     Route: 048
  8. OSCAL 500 [Concomitant]
     Route: 048
  9. TYLENOL [Concomitant]
     Dosage: 500MG AS REQUIRED
     Route: 048
  10. SLOW MAGNESIUM [Concomitant]
     Dosage: 2TAB PER DAY
     Route: 048
  11. IMODIUM [Concomitant]
     Dosage: 2MG AS REQUIRED
     Route: 048
  12. DIGOXIN [Concomitant]
     Dosage: .125MG PER DAY
     Route: 048
  13. PREMARIN [Concomitant]
     Dosage: .9MG PER DAY
     Route: 048

REACTIONS (2)
  - CATHETER RELATED COMPLICATION [None]
  - PHARMACEUTICAL PRODUCT COMPLAINT [None]
